FAERS Safety Report 10200261 (Version 1)
Quarter: 2014Q2

REPORT INFORMATION
  Report Type: Spontaneous
  Country: US (occurrence: US)
  Receive Date: 20140527
  Receipt Date: 20140527
  Transmission Date: 20141212
  Serious: No
  Sender: FDA-Public Use
  Company Number: -SAAVPROD-CAMP-1002918

PATIENT
  Sex: Male

DRUGS (5)
  1. ALEMTUZUMAB [Suspect]
     Indication: T-CELL PROLYMPHOCYTIC LEUKAEMIA
     Dosage: 3 MG, UNK
     Route: 065
     Dates: start: 20130412
  2. ALEMTUZUMAB [Suspect]
     Indication: T-CELL PROLYMPHOCYTIC LEUKAEMIA
     Dosage: 10 MG, UNK
     Route: 065
  3. ALEMTUZUMAB [Suspect]
     Indication: T-CELL PROLYMPHOCYTIC LEUKAEMIA
     Dosage: 30 MG, ONCE
     Route: 065
     Dates: start: 20130417, end: 20130417
  4. ALEMTUZUMAB [Suspect]
     Indication: T-CELL PROLYMPHOCYTIC LEUKAEMIA
     Dosage: 30 MG, ONCE
     Route: 065
     Dates: start: 20130506, end: 20130506
  5. ALEMTUZUMAB [Suspect]
     Indication: T-CELL PROLYMPHOCYTIC LEUKAEMIA
     Dosage: 30 MG, ONCE
     Route: 065
     Dates: start: 20130508, end: 20130508

REACTIONS (5)
  - Chest pain [Unknown]
  - Urticaria [Unknown]
  - Pyrexia [Recovered/Resolved]
  - Fatigue [Recovered/Resolved]
  - Nausea [Unknown]
